FAERS Safety Report 24984174 (Version 1)
Quarter: 2025Q1

REPORT INFORMATION
  Report Type: Spontaneous
  Country: CA (occurrence: CA)
  Receive Date: 20250219
  Receipt Date: 20250219
  Transmission Date: 20250408
  Serious: Yes (Death)
  Sender: CSL BEHRING
  Company Number: CA-BEH-2025195614

PATIENT
  Age: 72 Year
  Sex: Male
  Weight: 82 kg

DRUGS (29)
  1. HUMAN IMMUNOGLOBULIN G [Suspect]
     Active Substance: HUMAN IMMUNOGLOBULIN G
     Indication: Immune thrombocytopenia
     Route: 042
  2. ACETAMINOPHEN [Concomitant]
     Active Substance: ACETAMINOPHEN
  3. ALLOPURINOL [Concomitant]
     Active Substance: ALLOPURINOL
  4. ATROPINE SULFATE\DIPHENOXYLATE HYDROCHLORIDE [Concomitant]
     Active Substance: ATROPINE SULFATE\DIPHENOXYLATE HYDROCHLORIDE
  5. CALCITRIOL [Concomitant]
     Active Substance: CALCITRIOL
  6. CALCIUM [Concomitant]
     Active Substance: CALCIUM
  7. CALCIUM CITRATE [Concomitant]
     Active Substance: CALCIUM CITRATE
  8. CITALOPRAM [Concomitant]
     Active Substance: CITALOPRAM
  9. DENOSUMAB [Concomitant]
     Active Substance: DENOSUMAB
  10. DIPHENHYDRAMINE [Concomitant]
     Active Substance: DIPHENHYDRAMINE
  11. EPOETIN ALFA [Concomitant]
     Active Substance: ERYTHROPOIETIN
  12. EZETIMIBE [Concomitant]
     Active Substance: EZETIMIBE
  13. FOLIC ACID [Concomitant]
     Active Substance: FOLIC ACID
  14. HYDROCORTISONE [Concomitant]
     Active Substance: HYDROCORTISONE
  15. HYDROMORPHONE [Concomitant]
     Active Substance: HYDROMORPHONE
  16. LIDOCAINE [Concomitant]
     Active Substance: LIDOCAINE
  17. LOPERAMIDE [Concomitant]
     Active Substance: LOPERAMIDE
  18. MAGNESIUM [Concomitant]
     Active Substance: MAGNESIUM
  19. METOPROLOL [Concomitant]
     Active Substance: METOPROLOL
     Route: 065
  20. NYSTATIN [Concomitant]
     Active Substance: NYSTATIN
  21. OMEPRAZOLE [Concomitant]
     Active Substance: OMEPRAZOLE
  22. PHOSPHORUS [Concomitant]
     Active Substance: PHOSPHORUS
  23. PLANTAGO MAJOR LEAF [Concomitant]
     Active Substance: PLANTAGO MAJOR LEAF
  24. PLATELETS [Concomitant]
     Active Substance: HUMAN PLATELET, ALLOGENIC
  25. POTASSIUM [Concomitant]
     Active Substance: POTASSIUM
  26. PREDNISONE [Concomitant]
     Active Substance: PREDNISONE
  27. SIROLIMUS [Concomitant]
     Active Substance: SIROLIMUS
  28. SODIUM BICARBONATE [Concomitant]
     Active Substance: SODIUM BICARBONATE
  29. VITAMINS NOS [Concomitant]
     Active Substance: VITAMINS

REACTIONS (2)
  - Anxiety [Fatal]
  - Dyspnoea [Fatal]
